FAERS Safety Report 11528919 (Version 1)
Quarter: 2015Q3

REPORT INFORMATION
  Report Type: Spontaneous
  Country: US (occurrence: None)
  Receive Date: 20150918
  Receipt Date: 20150918
  Transmission Date: 20151125
  Serious: No
  Sender: FDA-Public Use
  Company Number: None

PATIENT

DRUGS (1)
  1. ACTEMRA [Suspect]
     Active Substance: TOCILIZUMAB
     Dosage: BEST ESTIMATE START DATE
     Route: 058

REACTIONS (3)
  - Hepatic enzyme increased [None]
  - Cholecystectomy [None]
  - Hepatic cirrhosis [None]
